FAERS Safety Report 12706366 (Version 1)
Quarter: 2016Q3

REPORT INFORMATION
  Report Type: Spontaneous
  Country: US (occurrence: None)
  Receive Date: 20160831
  Receipt Date: 20160831
  Transmission Date: 20161109
  Serious: Yes (Life-Threatening, Hospitalization)
  Sender: FDA-Public Use
  Company Number: None

PATIENT
  Age: 55 Year
  Sex: Male
  Weight: 147.3 kg

DRUGS (1)
  1. ENOXAPARIN [Suspect]
     Active Substance: ENOXAPARIN
     Indication: RETROPERITONEAL HAEMATOMA
     Route: 058
     Dates: start: 20160724, end: 20160802

REACTIONS (4)
  - Haematocrit decreased [None]
  - Haemorrhage [None]
  - Haemoglobin decreased [None]
  - Retroperitoneal haematoma [None]

NARRATIVE: CASE EVENT DATE: 20160802
